FAERS Safety Report 5096313-3 (Version None)
Quarter: 2006Q3

REPORT INFORMATION
  Report Type: 
  Country: None (occurrence: None)
  Receive Date: 20060905
  Receipt Date: 20060823
  Transmission Date: 20061208
  Serious: Yes (Hospitalization, Other)
  Sender: FDA-Public Use
  Company Number: PHBS2006BR12978

PATIENT
  Age: 90 Year
  Sex: Male

DRUGS (2)
  1. ZOMETA [Suspect]
     Indication: PROSTATE CANCER
     Dosage: 4 MG, EVERY 28 DAYS
     Route: 042
     Dates: start: 20041201
  2. ZOLADEX [Concomitant]
     Indication: PROSTATE CANCER
     Dosage: 10.8 UNK, EVERY 90 DAYS
     Route: 065

REACTIONS (2)
  - OSTEONECROSIS [None]
  - PAIN IN JAW [None]
